FAERS Safety Report 9159585 (Version 3)
Quarter: 2013Q2

REPORT INFORMATION
  Report Type: Report from Study
  Country: IT (occurrence: IT)
  Receive Date: 20130313
  Receipt Date: 20130516
  Transmission Date: 20140414
  Serious: Yes (Other)
  Sender: FDA-Public Use
  Company Number: IT-CELGENEUS-083-21880-13030273

PATIENT
  Age: 64 Year
  Sex: Male

DRUGS (4)
  1. REVLIMID [Suspect]
     Indication: NON-HODGKIN^S LYMPHOMA STAGE IV
     Dosage: 15 MILLIGRAM
     Route: 048
     Dates: start: 20120213, end: 20120430
  2. REVLIMID [Suspect]
     Dosage: 10 MILLIGRAM
     Route: 048
     Dates: start: 20120508, end: 20120617
  3. RITUXIMAB [Suspect]
     Indication: NON-HODGKIN^S LYMPHOMA STAGE IV
     Route: 041
     Dates: start: 20120227, end: 20120318
  4. RITUXIMAB [Suspect]
     Route: 041
     Dates: start: 20120515, end: 20120604

REACTIONS (1)
  - Prostate cancer [Unknown]
